FAERS Safety Report 7390198-8 (Version None)
Quarter: 2011Q2

REPORT INFORMATION
  Report Type: 
  Country: None (occurrence: None)
  Receive Date: 20110401
  Receipt Date: 20110324
  Transmission Date: 20111010
  Serious: Yes (Other)
  Sender: FDA-Public Use
  Company Number: US-ROCHE-545019

PATIENT
  Sex: Male
  Weight: 65.8 kg

DRUGS (13)
  1. LEXAPRO [Concomitant]
     Indication: DEPRESSION
     Dates: start: 20031218
  2. ACCUTANE [Suspect]
     Indication: ACNE
     Route: 065
     Dates: start: 19940906
  3. KLONOPIN [Suspect]
     Dosage: EITHER 1 MG BID OR IN 3 DIVIDED DOSES (0.5MG, 0.5MG AND 1MG)
     Route: 048
     Dates: start: 19970805
  4. KLONOPIN [Suspect]
     Route: 048
     Dates: start: 20000222, end: 20020221
  5. KLONOPIN [Suspect]
     Route: 048
     Dates: start: 19960523, end: 19961210
  6. KLONOPIN [Suspect]
     Dosage: EITHER 1.0MG BID OR IN 3 DIVIDED DOSES (0.5MG, 0.5MG + 1.0MG)
     Route: 048
     Dates: start: 20020221
  7. KLONOPIN [Suspect]
     Route: 048
     Dates: start: 19961210
  8. KLONOPIN [Suspect]
     Route: 048
  9. KLONOPIN [Suspect]
     Route: 048
     Dates: start: 19960423, end: 19960523
  10. KLONOPIN [Suspect]
     Route: 048
     Dates: start: 19970206, end: 19970805
  11. ACCUTANE [Suspect]
     Dosage: ACCUTANE 40 MG EVERY OTHER DAY ALTERNATING WITH 80 MG
     Route: 065
     Dates: start: 19941004, end: 19950207
  12. PAXIL [Concomitant]
     Indication: DEPRESSION
     Dosage: 1/2 TAB DAILY FOR 6 DAYS THEN 1 TAB DAILY THEREAFTER
     Dates: start: 20000221, end: 20000301
  13. ZOLOFT [Concomitant]
     Indication: DEPRESSION
     Dates: start: 20020813

REACTIONS (17)
  - ILEITIS [None]
  - COLITIS [None]
  - PANIC ATTACK [None]
  - ALOPECIA SCARRING [None]
  - DYSPHAGIA [None]
  - EMOTIONAL DISTRESS [None]
  - FOLLICULITIS [None]
  - CALCINOSIS [None]
  - MELANOCYTIC NAEVUS [None]
  - GENERALISED ANXIETY DISORDER [None]
  - INFLAMMATORY BOWEL DISEASE [None]
  - DEPRESSION [None]
  - SKIN PAPILLOMA [None]
  - ORAL HERPES [None]
  - RASH [None]
  - DYSPEPSIA [None]
  - CROHN'S DISEASE [None]
